FAERS Safety Report 10419895 (Version 1)
Quarter: 2014Q2

REPORT INFORMATION
  Report Type: Spontaneous
  Country: US (occurrence: None)
  Receive Date: 20140627
  Receipt Date: 20140627
  Transmission Date: 20141212
  Serious: Yes (Hospitalization, Other)
  Sender: FDA-Public Use
  Company Number: CABO 14004064

PATIENT
  Age: 55 Year
  Sex: Male
  Weight: 106 kg

DRUGS (20)
  1. COMETRIQ [Suspect]
     Indication: MALIGNANT MELANOMA
     Route: 048
     Dates: start: 20140207, end: 20140323
  2. COMETRIQ [Suspect]
     Indication: THROMBOSIS IN DEVICE
     Route: 048
     Dates: start: 20140207, end: 20140323
  3. LORAZEPAM [Concomitant]
  4. ONDANSETRON [Concomitant]
  5. OCYCODONE [Concomitant]
  6. GABAPENTIN [Concomitant]
  7. DRONABINOL [Concomitant]
  8. SERTRALINE [Concomitant]
  9. SENNA (SENNA ALEXANDRIA) [Concomitant]
  10. FENTANYL [Concomitant]
  11. FINASTERIDE [Concomitant]
  12. TAMSULOSIN [Concomitant]
  13. DIAZEPAM [Concomitant]
  14. POLYETHYLENE GLYCOL [Concomitant]
  15. DEXAMETHASONE [Concomitant]
  16. DACARBAZINE [Concomitant]
  17. REGLAN (METOCLOPRAMIDE) [Suspect]
  18. OMEPRAZOLE [Suspect]
  19. MAGNESIUM (MAGNESIUM HYDROXIDE) [Concomitant]
  20. DOCUSATE [Concomitant]

REACTIONS (13)
  - Thrombosis in device [None]
  - Dehydration [None]
  - Pulmonary embolism [None]
  - Pleural effusion [None]
  - Food craving [None]
  - Hiccups [None]
  - Hypophagia [None]
  - Odynophagia [None]
  - Neck pain [None]
  - Asthenia [None]
  - Stomatitis [None]
  - Nausea [None]
  - Off label use [None]
